FAERS Safety Report 11179078 (Version 2)
Quarter: 2015Q2

REPORT INFORMATION
  Report Type: Spontaneous
  Country: US (occurrence: None)
  Receive Date: 20150514
  Receipt Date: 20150618
  Transmission Date: 20150821
  Serious: No
  Sender: FDA-Public Use
  Company Number: US-145653

PATIENT
  Age: 65 Year
  Sex: Male
  Weight: 98.3 kg

DRUGS (1)
  1. BOTULISM ANTITOXIN [Suspect]
     Active Substance: BOTULISM ANTITOXIN
     Indication: BOTULISM
     Dosage: NOT OTHERWISE SPECIFIED
     Route: 042
     Dates: start: 20150424

REACTIONS (4)
  - Botulism [None]
  - Pyrexia [None]
  - Tachycardia [None]
  - Bradycardia [None]

NARRATIVE: CASE EVENT DATE: 20150424
